FAERS Safety Report 18938099 (Version 1)
Quarter: 2021Q1

REPORT INFORMATION
  Report Type: Spontaneous
  Country: SE (occurrence: SE)
  Receive Date: 20210225
  Receipt Date: 20210225
  Transmission Date: 20210420
  Serious: Yes (Life-Threatening)
  Sender: FDA-Public Use
  Company Number: NVSC2021SE042845

PATIENT
  Age: 75 Year
  Sex: Female

DRUGS (3)
  1. METOTREXAT [Suspect]
     Active Substance: METHOTREXATE SODIUM
     Indication: RHEUMATOID ARTHRITIS
     Dosage: 10 MG
     Route: 065
     Dates: start: 20091201, end: 20210120
  2. HYRIMOZ [Suspect]
     Active Substance: ADALIMUMAB-ADAZ
     Indication: RHEUMATOID ARTHRITIS
     Dosage: 40 MG
     Route: 065
     Dates: start: 20200921, end: 20210120
  3. PREDNISOLON [Concomitant]
     Active Substance: PREDNISOLONE
     Indication: PRODUCT USED FOR UNKNOWN INDICATION
     Dosage: 5 MG
     Route: 065
     Dates: start: 20140328

REACTIONS (1)
  - Urosepsis [Recovered/Resolved]

NARRATIVE: CASE EVENT DATE: 20210120
